FAERS Safety Report 10970888 (Version 1)
Quarter: 2015Q1

REPORT INFORMATION
  Report Type: Other
  Country: FR (occurrence: FR)
  Receive Date: 20150331
  Receipt Date: 20150331
  Transmission Date: 20150721
  Serious: Yes (Hospitalization)
  Sender: FDA-Public Use
  Company Number: FR-CUBIST PHARMACEUTICALS, INC.-2015CBST000385

PATIENT

DRUGS (2)
  1. CUBICIN [Suspect]
     Active Substance: DAPTOMYCIN
     Indication: OFF LABEL USE
  2. CUBICIN [Suspect]
     Active Substance: DAPTOMYCIN
     Indication: MEDIASTINITIS
     Dosage: 850 MG, UNK
     Route: 042
     Dates: start: 20150115, end: 20150121

REACTIONS (3)
  - Off label use [Unknown]
  - Confusional state [Recovered/Resolved]
  - Tremor [Recovered/Resolved]

NARRATIVE: CASE EVENT DATE: 20150115
